FAERS Safety Report 5072757-0 (Version None)
Quarter: 2006Q3

REPORT INFORMATION
  Report Type: 
  Country: None (occurrence: None)
  Receive Date: 20060807
  Receipt Date: 20060726
  Transmission Date: 20061208
  Serious: Yes (Hospitalization)
  Sender: FDA-Public Use
  Company Number: US-BRISTOL-MYERS SQUIBB COMPANY-13464292

PATIENT
  Age: 62 Year
  Sex: Female
  Weight: 71 kg

DRUGS (16)
  1. CYTOXAN [Suspect]
     Indication: CHRONIC LYMPHOCYTIC LEUKAEMIA
     Route: 042
     Dates: start: 20060314, end: 20060316
  2. FLUDARA [Suspect]
     Indication: CHRONIC LYMPHOCYTIC LEUKAEMIA
     Route: 042
     Dates: start: 20060314, end: 20060316
  3. RITUXAN [Suspect]
     Indication: CHRONIC LYMPHOCYTIC LEUKAEMIA
     Route: 042
     Dates: start: 20060313, end: 20060313
  4. SENOKOT [Concomitant]
  5. HYDROCODONE BITARTRATE [Concomitant]
  6. IMMUNE GLOBULIN INTRAVENOUS (HUMAN) [Concomitant]
     Dates: start: 20040114
  7. INSULIN [Concomitant]
  8. BACTRIM [Concomitant]
  9. VALTREX [Concomitant]
  10. CARDURA [Concomitant]
  11. LIPITOR [Concomitant]
  12. DIOVAN [Concomitant]
  13. VASOTEC [Concomitant]
  14. NORVASC [Concomitant]
  15. ALLOPURINOL [Concomitant]
  16. METAMUCIL [Concomitant]

REACTIONS (14)
  - BACK PAIN [None]
  - CARPAL TUNNEL SYNDROME [None]
  - COUGH [None]
  - DEHYDRATION [None]
  - DIARRHOEA [None]
  - HYPERGLYCAEMIA [None]
  - NAUSEA [None]
  - NECK PAIN [None]
  - OEDEMA PERIPHERAL [None]
  - PYREXIA [None]
  - RASH [None]
  - TACHYCARDIA [None]
  - URINE ODOUR ABNORMAL [None]
  - VOMITING [None]
